FAERS Safety Report 4969104-9 (Version None)
Quarter: 2006Q2

REPORT INFORMATION
  Report Type: 
  Country: None (occurrence: None)
  Receive Date: 20060411
  Receipt Date: 20050111
  Transmission Date: 20061013
  Serious: Yes (Other)
  Sender: FDA-Public Use
  Company Number: US-BRISTOL-MYERS SQUIBB COMPANY-12820973

PATIENT
  Age: 54 Year
  Sex: Female

DRUGS (8)
  1. PARAPLATIN [Suspect]
     Indication: BREAST CANCER METASTATIC
     Dosage: ON DAYS 1, 8, AND 15
     Route: 042
     Dates: start: 20041116, end: 20041117
  2. PARAPLATIN [Suspect]
     Dosage: ON DAYS 1, 8, AND 15
     Route: 042
     Dates: start: 20041222, end: 20050216
  3. TAXOL [Concomitant]
  4. HERCEPTIN [Concomitant]
  5. ZOFRAN [Concomitant]
     Route: 042
  6. DECADRON [Concomitant]
     Route: 042
  7. BENADRYL [Concomitant]
     Route: 042
  8. CIMETIDINE [Concomitant]
     Route: 042

REACTIONS (1)
  - INFUSION RELATED REACTION [None]
